FAERS Safety Report 17954210 (Version 1)
Quarter: 2020Q2

REPORT INFORMATION
  Report Type: Report from Study
  Country: US (occurrence: US)
  Receive Date: 20200629
  Receipt Date: 20200629
  Transmission Date: 20200714
  Serious: Yes (Other)
  Sender: FDA-Public Use
  Company Number: US-AUROBINDO-AUR-APL-2020-030223

PATIENT
  Age: 59 Year
  Sex: Male

DRUGS (7)
  1. CLOPIDOGREL [Suspect]
     Active Substance: CLOPIDOGREL BISULFATE
     Indication: ANTIPLATELET THERAPY
     Dosage: 300 MILLIGRAM BOLUS DOSE
     Route: 048
  2. ASPIRIN. [Suspect]
     Active Substance: ASPIRIN
     Dosage: 81 MILLIGRAM, DAILY
     Route: 048
  3. CLOPIDOGREL [Suspect]
     Active Substance: CLOPIDOGREL BISULFATE
     Dosage: 75 MILLIGRAM, ONCE A DAY
     Route: 048
  4. TICAGRELOR. [Suspect]
     Active Substance: TICAGRELOR
     Indication: ANTIPLATELET THERAPY
     Dosage: 180 MILLIGRAM BOLUS DOSE
     Route: 048
  5. TICAGRELOR. [Suspect]
     Active Substance: TICAGRELOR
     Dosage: 90 MILLIGRAM, TWO TIMES A DAY
     Route: 048
  6. ASPIRIN. [Suspect]
     Active Substance: ASPIRIN
     Indication: ANTIPLATELET THERAPY
     Dosage: 325 MILLIGRAM, DAILY
     Route: 048
  7. ALTEPLASE. [Suspect]
     Active Substance: ALTEPLASE
     Indication: ANTIPLATELET THERAPY
     Dosage: UNK
     Route: 042

REACTIONS (4)
  - Subarachnoid haemorrhage [Unknown]
  - Facial paralysis [Unknown]
  - Platelet aggregation inhibition [Unknown]
  - Dysarthria [Unknown]
